FAERS Safety Report 4506898-0 (Version None)
Quarter: 2004Q4

REPORT INFORMATION
  Report Type: 
  Country: None (occurrence: None)
  Receive Date: 20041117
  Receipt Date: 20041102
  Transmission Date: 20050328
  Serious: Yes (Hospitalization, Other)
  Sender: FDA-Public Use
  Company Number: 2004082358

PATIENT
  Age: 47 Year
  Sex: Female
  Weight: 73.0291 kg

DRUGS (11)
  1. NEURONTIN [Suspect]
     Indication: COMPLICATED MIGRAINE
     Dosage: 100 MG (100 MG, 1 IN 1 D), ORAL
     Route: 048
     Dates: start: 20000607, end: 20030101
  2. VALPROATE SODIUM [Suspect]
     Indication: COMPLICATED MIGRAINE
     Dosage: 1000 MG (500 MG, 2 IN 1 D), ORAL
     Route: 048
     Dates: end: 20030101
  3. TOPIRAMATE [Suspect]
     Indication: COMPLICATED MIGRAINE
     Dosage: 30 MG (30 MG), ORAL
     Route: 048
     Dates: start: 20031008
  4. MARVELON (DESOGESTREL, ETHINYLESTRADIOL) [Concomitant]
  5. AMLODIPINE BESYLATE [Concomitant]
  6. CLOPIDOGREL BISULFATE [Concomitant]
  7. VERAPAMIL HCL [Concomitant]
  8. ALPRAZOLAM [Concomitant]
  9. SULBUTAMOL (SULBUTAMOL) [Concomitant]
  10. ISOSORBIDE DINITRATE [Concomitant]
  11. AZELASTINE HYDROCHLORIDE (AZELASTINE HYDROCHLORIDE) [Concomitant]

REACTIONS (35)
  - ASTHENIA [None]
  - BALANCE DISORDER [None]
  - CAROTID ARTERY STENOSIS [None]
  - CEREBELLAR ATROPHY [None]
  - CEREBRAL ATROPHY [None]
  - CEREBROVASCULAR ACCIDENT [None]
  - CLUMSINESS [None]
  - CONDITION AGGRAVATED [None]
  - CYSTITIS INTERSTITIAL [None]
  - DEMYELINATION [None]
  - DIFFICULTY IN WALKING [None]
  - DISTURBANCE IN ATTENTION [None]
  - DIZZINESS [None]
  - DROOLING [None]
  - DRUG INEFFECTIVE [None]
  - DYSARTHRIA [None]
  - DYSGEUSIA [None]
  - ESSENTIAL TREMOR [None]
  - GAIT DISTURBANCE [None]
  - HEMIPARESIS [None]
  - HYPOAESTHESIA [None]
  - INTERVERTEBRAL DISC PROTRUSION [None]
  - MALAISE [None]
  - MEMORY IMPAIRMENT [None]
  - MUSCLE TWITCHING [None]
  - PARAESTHESIA [None]
  - PINEAL NEOPLASM [None]
  - REFUSAL OF TREATMENT BY PATIENT [None]
  - SENSATION OF HEAVINESS [None]
  - TRANSIENT ISCHAEMIC ATTACK [None]
  - TREATMENT NONCOMPLIANCE [None]
  - TREMOR [None]
  - URINE ABNORMALITY [None]
  - URINE ODOUR ABNORMAL [None]
  - VISUAL ACUITY REDUCED [None]
